FAERS Safety Report 10571767 (Version 1)
Quarter: 2014Q4

REPORT INFORMATION
  Report Type: Spontaneous
  Country: US (occurrence: US)
  Receive Date: 20141107
  Receipt Date: 20141107
  Transmission Date: 20150529
  Serious: Yes (Other)
  Sender: FDA-Public Use
  Company Number: US-MERCK-1410USA016697

PATIENT
  Age: 58 Year
  Sex: Male

DRUGS (2)
  1. DAPTOMYCIN. [Interacting]
     Active Substance: DAPTOMYCIN
     Indication: OSTEOMYELITIS
     Dosage: 750 MG/KG, UNK
  2. ZOCOR [Suspect]
     Active Substance: SIMVASTATIN
     Dosage: 40 MG, UNK
     Route: 048

REACTIONS (4)
  - Rhabdomyolysis [Recovered/Resolved]
  - Drug interaction [Unknown]
  - Myalgia [Unknown]
  - Blood creatine phosphokinase increased [Unknown]
